FAERS Safety Report 4900234-3 (Version None)
Quarter: 2006Q1

REPORT INFORMATION
  Report Type: 
  Country: None (occurrence: None)
  Receive Date: 20060203
  Receipt Date: 20051227
  Transmission Date: 20060701
  Serious: Yes (Death, Life-Threatening, Hospitalization, Disabling, Other)
  Sender: FDA-Public Use
  Company Number: 2005AP06598

PATIENT
  Age: 26123 Day
  Sex: Male
  Weight: 72 kg

DRUGS (11)
  1. IRESSA [Suspect]
     Indication: PROSTATE CANCER
     Route: 048
     Dates: start: 20051205, end: 20051224
  2. RADIOTHERAPY [Suspect]
     Indication: PROSTATE CANCER
     Dosage: 16.2 GY
     Dates: start: 20051212, end: 20051223
  3. TRIKOZOL [Concomitant]
     Indication: GASTROENTERITIS
     Route: 048
     Dates: start: 20051226
  4. CIPROXIN [Concomitant]
     Indication: GASTROENTERITIS
     Route: 048
     Dates: start: 20051226
  5. ROCEPHALIN [Concomitant]
     Indication: GASTROENTERITIS
     Route: 042
     Dates: start: 20051227
  6. FURESIS [Concomitant]
     Route: 048
     Dates: start: 20051228
  7. ZOPINOX [Concomitant]
     Indication: INSOMNIA
     Route: 048
     Dates: start: 20051225
  8. ACETAMINOPHEN [Concomitant]
     Indication: PAIN
     Route: 048
     Dates: start: 20051225, end: 20051226
  9. NAPROMETIN [Concomitant]
     Indication: PAIN
     Route: 048
     Dates: start: 20051226
  10. GAVISCON [Concomitant]
     Route: 048
     Dates: start: 20051226
  11. ACETYLSALICYLIC ACID SRT [Concomitant]
     Indication: PROPHYLAXIS

REACTIONS (11)
  - ACUTE MYOCARDIAL INFARCTION [None]
  - ANURIA [None]
  - CARDIAC FAILURE [None]
  - CARDIOGENIC SHOCK [None]
  - CARDIOMYOPATHY [None]
  - CIRCULATORY COLLAPSE [None]
  - DRUG TOXICITY [None]
  - GASTROENTERITIS [None]
  - PYREXIA [None]
  - RENAL FAILURE [None]
  - THERAPY NON-RESPONDER [None]
